FAERS Safety Report 6710641-4 (Version None)
Quarter: 2010Q2

REPORT INFORMATION
  Report Type: 
  Country: None (occurrence: None)
  Receive Date: 20100504
  Receipt Date: 20100504
  Transmission Date: 20101027
  Serious: Yes (Other)
  Sender: FDA-Public Use
  Company Number: None

PATIENT
  Sex: Male
  Weight: 93.441 kg

DRUGS (1)
  1. OXYCONTIN [Suspect]
     Indication: BACK PAIN
     Dosage: 40 BID ORAL
     Route: 048

REACTIONS (3)
  - BACK PAIN [None]
  - DRUG DEPENDENCE [None]
  - REFUSAL OF TREATMENT BY PATIENT [None]
